FAERS Safety Report 6588502-3 (Version None)
Quarter: 2010Q1

REPORT INFORMATION
  Report Type: 
  Country: None (occurrence: None)
  Receive Date: 20100218
  Receipt Date: 20100211
  Transmission Date: 20100710
  Serious: Yes (Hospitalization)
  Sender: FDA-Public Use
  Company Number: GB-ROCHE-685177

PATIENT
  Sex: Male

DRUGS (6)
  1. BEVACIZUMAB [Suspect]
     Route: 042
     Dates: start: 20081027
  2. CARBOPLATIN [Suspect]
     Route: 042
     Dates: start: 20081027
  3. PACLITAXEL [Suspect]
     Indication: NON-SMALL CELL LUNG CANCER
     Route: 042
     Dates: start: 20081027
  4. DOMPERIDONE [Concomitant]
     Indication: NAUSEA
     Dates: start: 20081027
  5. CYCLIZINE [Concomitant]
     Indication: NAUSEA
     Dates: start: 20081229
  6. NOZINAN [Concomitant]
     Indication: NAUSEA
     Dates: start: 20081229

REACTIONS (2)
  - HEADACHE [None]
  - LOWER RESPIRATORY TRACT INFECTION [None]
